FAERS Safety Report 19769831 (Version 1)
Quarter: 2021Q3

REPORT INFORMATION
  Report Type: Spontaneous
  Country: US (occurrence: US)
  Receive Date: 20210831
  Receipt Date: 20210831
  Transmission Date: 20211014
  Serious: Yes (Death, Other)
  Sender: FDA-Public Use
  Company Number: US-CURIUM-199400108

PATIENT
  Age: 59 Year
  Sex: Female

DRUGS (1)
  1. SODIUM IODIDE I 131 [Suspect]
     Active Substance: SODIUM IODIDE I-131

REACTIONS (4)
  - Tachycardia [Unknown]
  - Arrhythmia [Unknown]
  - Seizure [Unknown]
  - Myocardial infarction [Fatal]
